FAERS Safety Report 15099288 (Version 2)
Quarter: 2018Q4

REPORT INFORMATION
  Report Type: Spontaneous
  Country: FR (occurrence: FR)
  Receive Date: 20180702
  Receipt Date: 20181023
  Transmission Date: 20190204
  Serious: Yes (Hospitalization)
  Sender: FDA-Public Use
  Company Number: FR-PFIZER INC-2018261626

PATIENT
  Age: 15 Year
  Sex: Male
  Weight: 44 kg

DRUGS (10)
  1. IMETH /00113801/ [Suspect]
     Active Substance: METHOTREXATE
     Indication: ADJUVANT THERAPY
     Dosage: 25 MG, WEEKLY (ON TUESDAY)
     Route: 058
     Dates: start: 20180509
  2. FASTURTEC [Suspect]
     Active Substance: RASBURICASE
     Indication: HYPERURICAEMIA
     Dosage: 9 MG, SINGLE
     Route: 042
     Dates: start: 20180510
  3. KEPPRA [Concomitant]
     Active Substance: LEVETIRACETAM
     Indication: ADJUVANT THERAPY
     Dosage: UNK
  4. PURINETHOL [Concomitant]
     Active Substance: MERCAPTOPURINE
     Indication: ADJUVANT THERAPY
     Dosage: UNK
  5. L THYROXINE SERB [Concomitant]
     Active Substance: LEVOTHYROXINE SODIUM
     Indication: THYROID DISORDER
     Dosage: UNK
  6. LANZOR [Concomitant]
     Active Substance: LANSOPRAZOLE
     Dosage: UNK
  7. CYTARABINE. [Suspect]
     Active Substance: CYTARABINE
     Indication: LEUKAEMIA RECURRENT
     Dosage: 30 MG, SINGLE
     Route: 037
     Dates: start: 20180416
  8. BACTRIM [Suspect]
     Active Substance: SULFAMETHOXAZOLE\TRIMETHOPRIM
     Indication: ANTIBIOTIC PROPHYLAXIS
     Dosage: 2400 MG, WEEKLY
     Route: 048
     Dates: start: 20180509, end: 20180512
  9. DEPO-MEDROL [Suspect]
     Active Substance: METHYLPREDNISOLONE ACETATE
     Indication: LEUKAEMIA RECURRENT
     Dosage: 10 MG, SINGLE
     Route: 037
     Dates: start: 20180416
  10. METHOTREXATE BIODIM [Suspect]
     Active Substance: METHOTREXATE
     Indication: LEUKAEMIA RECURRENT
     Dosage: 12 MG, SINGLE
     Route: 037
     Dates: start: 20180416

REACTIONS (4)
  - Methaemoglobinaemia [Recovered/Resolved]
  - Product use in unapproved indication [Unknown]
  - Respiratory distress [Recovered/Resolved]
  - Product use issue [Unknown]

NARRATIVE: CASE EVENT DATE: 20180416
